FAERS Safety Report 21300157 (Version 1)
Quarter: 2022Q3

REPORT INFORMATION
  Report Type: Spontaneous
  Country: US (occurrence: None)
  Receive Date: 20220906
  Receipt Date: 20220906
  Transmission Date: 20221026
  Serious: Yes (Other)
  Sender: FDA-Public Use
  Company Number: None

PATIENT
  Sex: Female

DRUGS (2)
  1. VERZENIO [Suspect]
     Active Substance: ABEMACICLIB
     Indication: Breast cancer female
     Dosage: 100 MG ORAL?TAKE 1 TABLET (100 MG TOTAL) BY MOUTH 2 (TWO) TIMES DAILY FOR 28 DAYS. TAKE WIT OR WITHO
     Route: 048
     Dates: start: 20210830
  2. VERZENIO [Suspect]
     Active Substance: ABEMACICLIB
     Dosage: FREQUENCY : AS DIRECTED;?
     Route: 048

REACTIONS (2)
  - Surgery [None]
  - Therapy interrupted [None]
